FAERS Safety Report 21887290 (Version 1)
Quarter: 2023Q1

REPORT INFORMATION
  Report Type: Report from Study
  Country: CA (occurrence: CA)
  Receive Date: 20230119
  Receipt Date: 20230119
  Transmission Date: 20230418
  Serious: Yes (Other)
  Sender: FDA-Public Use
  Company Number: CA-JNJFOC-20221209431

PATIENT
  Age: 35 Year
  Sex: Female
  Weight: 47 kg

DRUGS (2)
  1. STELARA [Suspect]
     Active Substance: USTEKINUMAB
     Indication: Crohn^s disease
     Route: 042
     Dates: start: 20221103
  2. STELARA [Suspect]
     Active Substance: USTEKINUMAB
     Route: 058
     Dates: start: 20221229

REACTIONS (3)
  - Crohn^s disease [Unknown]
  - Melaena [Unknown]
  - Constipation [Unknown]

NARRATIVE: CASE EVENT DATE: 20220101
